FAERS Safety Report 13890569 (Version 2)
Quarter: 2017Q3

REPORT INFORMATION
  Report Type: Spontaneous
  Country: US (occurrence: US)
  Receive Date: 20170822
  Receipt Date: 20170824
  Transmission Date: 20171127
  Serious: Yes (Other)
  Sender: FDA-Public Use
  Company Number: US-PFIZER INC-2017355339

PATIENT
  Sex: Male

DRUGS (2)
  1. VIAGRA [Suspect]
     Active Substance: SILDENAFIL CITRATE
     Dosage: 100 MG, TWICE A WEEK OR EVERY OTHER WEEK
  2. VIAGRA [Suspect]
     Active Substance: SILDENAFIL CITRATE
     Indication: ERECTILE DYSFUNCTION
     Dosage: 100 MG, USED ON AN IRREGULAR BASIS MAY USE IT ON A WEEKLY BASIS OR MORE THAN ONCE DURING A WEEK

REACTIONS (3)
  - Dry eye [Unknown]
  - Photopsia [Unknown]
  - Blindness transient [Unknown]

NARRATIVE: CASE EVENT DATE: 2016
